FAERS Safety Report 7293511-5 (Version None)
Quarter: 2011Q1

REPORT INFORMATION
  Report Type: 
  Country: None (occurrence: None)
  Receive Date: 20110215
  Receipt Date: 20110204
  Transmission Date: 20110831
  Serious: Yes (Other)
  Sender: FDA-Public Use
  Company Number: US-MERCK-1010USA01165

PATIENT
  Age: 76 Year
  Sex: Female

DRUGS (2)
  1. FOSAMAX [Suspect]
     Indication: OSTEOPOROSIS
     Route: 048
     Dates: start: 20031125, end: 20100801
  2. ONE-A-DAY ESSENTIAL VITAMINS [Concomitant]
     Route: 065
     Dates: start: 20050101

REACTIONS (11)
  - HEAD INJURY [None]
  - CARDIAC FAILURE CONGESTIVE [None]
  - IMPAIRED HEALING [None]
  - DYSPNOEA [None]
  - FALL [None]
  - ATROPHY [None]
  - LOW TURNOVER OSTEOPATHY [None]
  - HYPERTENSION [None]
  - FEMUR FRACTURE [None]
  - ARTHROPATHY [None]
  - GASTROOESOPHAGEAL REFLUX DISEASE [None]
